FAERS Safety Report 6719018-9 (Version None)
Quarter: 2010Q2

REPORT INFORMATION
  Report Type: 
  Country: None (occurrence: None)
  Receive Date: 20100507
  Receipt Date: 20100322
  Transmission Date: 20101027
  Serious: Yes (Other)
  Sender: FDA-Public Use
  Company Number: 10-0294

PATIENT

DRUGS (1)
  1. AZO STANDARD MAXIMUM STRENGTH [Suspect]
     Indication: URINARY TRACT INFECTION
     Dosage: 2 TABLETS/3XDAY
     Dates: start: 20100319, end: 20100322

REACTIONS (1)
  - HAEMATOCHEZIA [None]
